FAERS Safety Report 7901724-1 (Version None)
Quarter: 2011Q4

REPORT INFORMATION
  Report Type: 
  Country: None (occurrence: None)
  Receive Date: 20111108
  Receipt Date: 20111103
  Transmission Date: 20120403
  Serious: Yes (Hospitalization)
  Sender: FDA-Public Use
  Company Number: CHPA2011US015518

PATIENT
  Age: 76 Year
  Sex: Female

DRUGS (1)
  1. VOLTAREN [Suspect]
     Indication: FOOT DEFORMITY
     Dosage: UNK, 1-2 TIMES PER DAY
     Route: 061
     Dates: start: 20110601, end: 20110901

REACTIONS (3)
  - WRONG TECHNIQUE IN DRUG USAGE PROCESS [None]
  - BRONCHITIS [None]
  - OFF LABEL USE [None]
